FAERS Safety Report 8610074-X (Version None)
Quarter: 2012Q3

REPORT INFORMATION
  Report Type: 
  Country: None (occurrence: None)
  Receive Date: 20120822
  Receipt Date: 20120813
  Transmission Date: 20120928
  Serious: Yes (Hospitalization)
  Sender: FDA-Public Use
  Company Number: US-BIOGENIDEC-2012BI029352

PATIENT
  Age: 28 Year
  Sex: Female

DRUGS (1)
  1. TYSABRI [Suspect]
     Indication: MULTIPLE SCLEROSIS
     Route: 042
     Dates: start: 20080603

REACTIONS (8)
  - APPENDICITIS PERFORATED [None]
  - ABSCESS [None]
  - ASTHENIA [None]
  - INFECTION [None]
  - PAIN IN EXTREMITY [None]
  - RASH [None]
  - FATIGUE [None]
  - FUNGAL INFECTION [None]
